FAERS Safety Report 4542812-X (Version None)
Quarter: 2004Q4

REPORT INFORMATION
  Report Type: 
  Country: None (occurrence: None)
  Receive Date: 20041229
  Receipt Date: 20041222
  Transmission Date: 20050328
  Serious: Yes (Other)
  Sender: FDA-Public Use
  Company Number: 25888

PATIENT
  Age: 51 Year
  Sex: Female

DRUGS (2)
  1. ALDARA [Suspect]
     Indication: BASAL CELL CARCINOMA
     Dosage: (3 IN 1 WEEK (S)), TOPICAL
     Route: 061
     Dates: start: 20040901, end: 20041001
  2. MULTIVITAMIN [Concomitant]

REACTIONS (7)
  - APPLICATION SITE DESQUAMATION [None]
  - APPLICATION SITE DRYNESS [None]
  - CONJUNCTIVAL HYPERAEMIA [None]
  - DRY EYE [None]
  - EYE IRRITATION [None]
  - IRITIS [None]
  - SCAR [None]
